FAERS Safety Report 18599818 (Version 3)
Quarter: 2021Q2

REPORT INFORMATION
  Report Type: Spontaneous
  Country: US (occurrence: US)
  Receive Date: 20201210
  Receipt Date: 20210624
  Transmission Date: 20210717
  Serious: Yes (Other)
  Sender: FDA-Public Use
  Company Number: US-GILEAD-2020-0507583

PATIENT
  Sex: Female
  Weight: 62.59 kg

DRUGS (84)
  1. TRUVADA [Suspect]
     Active Substance: EMTRICITABINE\TENOFOVIR DISOPROXIL FUMARATE
     Indication: HIV INFECTION
     Dosage: UNK
     Route: 048
     Dates: start: 2005, end: 2018
  2. COMPLERA [Suspect]
     Active Substance: EMTRICITABINE\RILPIVIRINE HYDROCHLORIDE\TENOFOVIR DISOPROXIL FUMARATE
     Indication: HIV INFECTION
     Dosage: UNK
     Route: 048
     Dates: start: 2012, end: 20130723
  3. ATORVASTATIN [Concomitant]
     Active Substance: ATORVASTATIN
  4. ZOLPIDEM [Concomitant]
     Active Substance: ZOLPIDEM TARTRATE
  5. CALCIUM ACETATE. [Concomitant]
     Active Substance: CALCIUM ACETATE
  6. CIPROFLOXACIN. [Concomitant]
     Active Substance: CIPROFLOXACIN
  7. LORAZEPAM. [Concomitant]
     Active Substance: LORAZEPAM
  8. METHYLPREDNISOLONE. [Concomitant]
     Active Substance: METHYLPREDNISOLONE
  9. TRUVADA [Suspect]
     Active Substance: EMTRICITABINE\TENOFOVIR DISOPROXIL FUMARATE
     Dosage: UNK
     Route: 048
     Dates: start: 2005, end: 2012
  10. AMOXICILLIN. [Concomitant]
     Active Substance: AMOXICILLIN
  11. LEVOTHYROXINE. [Concomitant]
     Active Substance: LEVOTHYROXINE
  12. NORVIR [Concomitant]
     Active Substance: RITONAVIR
  13. PREZISTA [Concomitant]
     Active Substance: DARUNAVIR ETHANOLATE
  14. OXYCONTIN [Concomitant]
     Active Substance: OXYCODONE HYDROCHLORIDE
  15. IBUPROFEN. [Concomitant]
     Active Substance: IBUPROFEN
  16. RENVELA [Concomitant]
     Active Substance: SEVELAMER CARBONATE
  17. LISINOPRIL. [Concomitant]
     Active Substance: LISINOPRIL
  18. AMLODIPINE BESYLATE. [Concomitant]
     Active Substance: AMLODIPINE BESYLATE
  19. BISACODYL. [Concomitant]
     Active Substance: BISACODYL
  20. AZITHROMYCIN ANHYDROUS. [Concomitant]
     Active Substance: AZITHROMYCIN ANHYDROUS
  21. OMEPRAZOLE. [Concomitant]
     Active Substance: OMEPRAZOLE
  22. SIMVASTATIN. [Concomitant]
     Active Substance: SIMVASTATIN
  23. EDURANT [Concomitant]
     Active Substance: RILPIVIRINE HYDROCHLORIDE
  24. CHERATUSSIN AC [Concomitant]
     Active Substance: CODEINE PHOSPHATE\GUAIFENESIN
  25. LOSARTAN POTASSIUM. [Concomitant]
     Active Substance: LOSARTAN POTASSIUM
  26. CLONIDINE HCL [Concomitant]
     Active Substance: CLONIDINE HYDROCHLORIDE
  27. AVELOX [Concomitant]
     Active Substance: MOXIFLOXACIN HYDROCHLORIDE
  28. METRONIDAZOLE. [Concomitant]
     Active Substance: METRONIDAZOLE
  29. VIREAD [Suspect]
     Active Substance: TENOFOVIR DISOPROXIL FUMARATE
     Dosage: UNK
     Route: 048
     Dates: start: 20130108, end: 20200909
  30. RANITIDINE. [Concomitant]
     Active Substance: RANITIDINE
  31. JULUCA [Concomitant]
     Active Substance: DOLUTEGRAVIR SODIUM\RILPIVIRINE HYDROCHLORIDE
  32. SENSIPAR [Concomitant]
     Active Substance: CINACALCET HYDROCHLORIDE
  33. ARICEPT [Concomitant]
     Active Substance: DONEPEZIL HYDROCHLORIDE
  34. RISPERIDONE. [Concomitant]
     Active Substance: RISPERIDONE
  35. ENDOCET [Concomitant]
     Active Substance: ACETAMINOPHEN\OXYCODONE HYDROCHLORIDE
  36. REVATIO [Concomitant]
     Active Substance: SILDENAFIL CITRATE
  37. HYDROXYZINE HCL [Concomitant]
     Active Substance: HYDROXYZINE HYDROCHLORIDE
  38. FLUCONAZOLE. [Concomitant]
     Active Substance: FLUCONAZOLE
  39. FLUDROCORTISONE ACETATE. [Concomitant]
     Active Substance: FLUDROCORTISONE ACETATE
  40. TYLENOL [Concomitant]
     Active Substance: ACETAMINOPHEN
  41. COMPLERA [Suspect]
     Active Substance: EMTRICITABINE\RILPIVIRINE HYDROCHLORIDE\TENOFOVIR DISOPROXIL FUMARATE
     Dosage: UNK
     Route: 048
     Dates: start: 20120828, end: 20121220
  42. DESCOVY [Concomitant]
     Active Substance: EMTRICITABINE\TENOFOVIR ALAFENAMIDE FUMARATE
  43. EPZICOM [Concomitant]
     Active Substance: ABACAVIR SULFATE\LAMIVUDINE
  44. ISENTRESS [Concomitant]
     Active Substance: RALTEGRAVIR POTASSIUM
  45. MEGESTROL ACETATE. [Concomitant]
     Active Substance: MEGESTROL ACETATE
  46. DIPHENHYDRAMINE. [Concomitant]
     Active Substance: DIPHENHYDRAMINE
  47. TEMAZEPAM. [Concomitant]
     Active Substance: TEMAZEPAM
  48. BUSPIRONE HCL [Concomitant]
     Active Substance: BUSPIRONE HYDROCHLORIDE
  49. FAMOTIDINE. [Concomitant]
     Active Substance: FAMOTIDINE
  50. PANTOPRAZOLE [Concomitant]
     Active Substance: PANTOPRAZOLE
  51. WARFARIN [Concomitant]
     Active Substance: WARFARIN
  52. PREZCOBIX [Concomitant]
     Active Substance: COBICISTAT\DARUNAVIR ETHANOLATE
  53. OXYCODONE HYDROCHLORIDE. [Concomitant]
     Active Substance: OXYCODONE HYDROCHLORIDE
  54. TRAMADOL. [Concomitant]
     Active Substance: TRAMADOL
  55. CALCITRIOL. [Concomitant]
     Active Substance: CALCITRIOL
  56. TACROLIMUS. [Concomitant]
     Active Substance: TACROLIMUS
  57. ACETAMINOPHEN;HYDROCODONE [Concomitant]
     Active Substance: ACETAMINOPHEN\HYDROCODONE
  58. FUROSEMIDE. [Concomitant]
     Active Substance: FUROSEMIDE
  59. VIREAD [Suspect]
     Active Substance: TENOFOVIR DISOPROXIL FUMARATE
     Indication: HIV INFECTION
     Dosage: UNK
     Route: 048
     Dates: start: 20130723, end: 201803
  60. EMTRIVA [Concomitant]
     Active Substance: EMTRICITABINE
  61. ACETAMINOPHEN. [Concomitant]
     Active Substance: ACETAMINOPHEN
  62. PREDNISONE. [Concomitant]
     Active Substance: PREDNISONE
  63. FOLIC ACID. [Concomitant]
     Active Substance: FOLIC ACID
  64. ALPRAZOLAM. [Concomitant]
     Active Substance: ALPRAZOLAM
  65. METOPROLOL TARTRATE. [Concomitant]
     Active Substance: METOPROLOL TARTRATE
  66. CYPROHEPTADINE. [Concomitant]
     Active Substance: CYPROHEPTADINE
  67. DICYCLOMINE [Concomitant]
     Active Substance: DICYCLOMINE HYDROCHLORIDE
  68. CITALOPRAM HYDROBROMIDE. [Concomitant]
     Active Substance: CITALOPRAM HYDROBROMIDE
  69. MIRTAZAPINE. [Concomitant]
     Active Substance: MIRTAZAPINE
  70. MYCOPHENOLATE MOFETIL. [Concomitant]
     Active Substance: MYCOPHENOLATE MOFETIL
  71. AMPICILLIN [Concomitant]
     Active Substance: AMPICILLIN
  72. PRAVASTATIN. [Concomitant]
     Active Substance: PRAVASTATIN
  73. SYNTHROID [Concomitant]
     Active Substance: LEVOTHYROXINE SODIUM
  74. MELOXICAM. [Concomitant]
     Active Substance: MELOXICAM
  75. GABAPENTIN. [Concomitant]
     Active Substance: GABAPENTIN
  76. BACLOFEN. [Concomitant]
     Active Substance: BACLOFEN
  77. CLONAZEPAM. [Concomitant]
     Active Substance: CLONAZEPAM
  78. FLORASTOR [LACTOBACILLUS ACIDOPHILUS] [Concomitant]
  79. ONDANSETRON [Concomitant]
     Active Substance: ONDANSETRON
  80. CYANOCOBALAMIN. [Concomitant]
     Active Substance: CYANOCOBALAMIN
  81. ORPHENADRINE CITRATE. [Concomitant]
     Active Substance: ORPHENADRINE CITRATE
  82. SERTRALINE HCL [Concomitant]
     Active Substance: SERTRALINE HYDROCHLORIDE
  83. PRORENAL D [Concomitant]
  84. VALGANCICLOVIR. [Concomitant]
     Active Substance: VALGANCICLOVIR

REACTIONS (6)
  - Chronic kidney disease [Unknown]
  - Osteoporosis [Not Recovered/Not Resolved]
  - Emotional distress [Unknown]
  - Tooth loss [Not Recovered/Not Resolved]
  - End stage renal disease [Not Recovered/Not Resolved]
  - Pain [Unknown]

NARRATIVE: CASE EVENT DATE: 2006
